FAERS Safety Report 5028175-4 (Version None)
Quarter: 2006Q2

REPORT INFORMATION
  Report Type: 
  Country: None (occurrence: None)
  Receive Date: 20060613
  Receipt Date: 20060602
  Transmission Date: 20061013
  Serious: Yes (Other)
  Sender: FDA-Public Use
  Company Number: 2006062739

PATIENT
  Age: 62 Year
  Sex: Female
  Weight: 63.5036 kg

DRUGS (3)
  1. NORVASC [Suspect]
     Indication: HYPERTENSION
     Dosage: 2.5 MG, ORAL; SEE IMAGE
     Route: 048
     Dates: start: 20060101, end: 20060101
  2. NORVASC [Suspect]
     Indication: HYPERTENSION
     Dosage: 2.5 MG, ORAL; SEE IMAGE
     Route: 048
     Dates: start: 20060101
  3. ZOLOFT [Concomitant]

REACTIONS (13)
  - ABDOMINAL PAIN [None]
  - ANOREXIA [None]
  - COLONIC POLYP [None]
  - DIVERTICULUM INTESTINAL [None]
  - FATIGUE [None]
  - FUNGUS STOOL IDENTIFIED [None]
  - GASTRITIS [None]
  - HAEMANGIOMA OF LIVER [None]
  - IMPAIRED GASTRIC EMPTYING [None]
  - MALAISE [None]
  - NAUSEA [None]
  - PELVIC PAIN [None]
  - WEIGHT DECREASED [None]
